FAERS Safety Report 16859315 (Version 2)
Quarter: 2019Q3

REPORT INFORMATION
  Report Type: Report from Study
  Country: None (occurrence: GR)
  Receive Date: 20190926
  Receipt Date: 20190930
  Transmission Date: 20191005
  Serious: Yes (Hospitalization, Other)
  Sender: FDA-Public Use
  Company Number: GR-ABBVIE-19K-066-2939257-00

PATIENT
  Age: 61 Year
  Sex: Male
  Weight: 90 kg

DRUGS (6)
  1. CLONOTRIL [Concomitant]
     Active Substance: CLONAZEPAM
     Indication: PRODUCT USED FOR UNKNOWN INDICATION
     Dates: start: 20190412
  2. VITAMIN B12 [Concomitant]
     Active Substance: CYANOCOBALAMIN
     Indication: PRODUCT USED FOR UNKNOWN INDICATION
     Route: 048
     Dates: start: 201908, end: 20190921
  3. DUODOPA [Suspect]
     Active Substance: CARBIDOPA\LEVODOPA
     Indication: PARKINSON^S DISEASE
     Dosage: CR: 5.4ML/H UNTIL 14:00, CR: 5.6ML/H UNTIL 00:00, ?CR: 3.5ML/H UNTIL MORNING; ED: 2.5ML
     Route: 050
     Dates: start: 20181214
  4. LOGIMAX [Concomitant]
     Active Substance: FELODIPINE\METOPROLOL SUCCINATE
     Indication: HYPERTENSION
     Dosage: (5+47.5)MG
     Route: 048
  5. MADOPAR [Concomitant]
     Active Substance: BENSERAZIDE HYDROCHLORIDE\LEVODOPA
     Indication: PARKINSON^S DISEASE
     Route: 048
  6. COSYREL [Concomitant]
     Active Substance: BISOPROLOL FUMARATE\PERINDOPRIL ARGININE
     Indication: PRODUCT USED FOR UNKNOWN INDICATION
     Dosage: (10+5)MG
     Route: 048

REACTIONS (11)
  - Burning sensation [Not Recovered/Not Resolved]
  - Hepatic function abnormal [Recovering/Resolving]
  - Decreased appetite [Not Recovered/Not Resolved]
  - Vomiting [Not Recovered/Not Resolved]
  - Blood creatinine increased [Not Recovered/Not Resolved]
  - Hypoaesthesia [Not Recovered/Not Resolved]
  - Gait inability [Not Recovered/Not Resolved]
  - Epilepsy [Recovered/Resolved]
  - Renal impairment [Recovering/Resolving]
  - Speech disorder [Not Recovered/Not Resolved]
  - Cyst [Not Recovered/Not Resolved]

NARRATIVE: CASE EVENT DATE: 201908
